FAERS Safety Report 9762103 (Version 1)
Quarter: 2013Q4

REPORT INFORMATION
  Report Type: Spontaneous
  Country: DE (occurrence: None)
  Receive Date: 20131213
  Receipt Date: 20131213
  Transmission Date: 20140711
  Serious: Yes (Other)
  Sender: FDA-Public Use
  Company Number: DEP_01294_2013

PATIENT
  Sex: 0

DRUGS (2)
  1. DICLOFENAC [Suspect]
     Indication: PRODUCT USED FOR UNKNOWN INDICATION
     Dosage: DF ORAL
     Route: 048
  2. TENOFOVIR [Suspect]
     Indication: PRODUCT USED FOR UNKNOWN INDICATION
     Dosage: DF

REACTIONS (5)
  - Renal failure acute [None]
  - Hypophosphataemia [None]
  - Drug interaction [None]
  - Nephropathy toxic [None]
  - Glycosuria [None]
